FAERS Safety Report 5869482-2 (Version None)
Quarter: 2008Q3

REPORT INFORMATION
  Report Type: 
  Country: None (occurrence: None)
  Receive Date: 20080829
  Receipt Date: 20080814
  Transmission Date: 20090109
  Serious: Yes (Other)
  Sender: FDA-Public Use
  Company Number: 2008PL000126

PATIENT
  Sex: Female

DRUGS (1)
  1. LOTRONEX [Suspect]
     Indication: IRRITABLE BOWEL SYNDROME
     Dosage: ;UNK;PO
     Route: 048
     Dates: start: 20080701, end: 20080801

REACTIONS (2)
  - COLITIS ISCHAEMIC [None]
  - INFECTION [None]
